FAERS Safety Report 19780269 (Version 2)
Quarter: 2021Q3

REPORT INFORMATION
  Report Type: Spontaneous
  Country: US (occurrence: US)
  Receive Date: 20210902
  Receipt Date: 20210923
  Transmission Date: 20211014
  Serious: No
  Sender: FDA-Public Use
  Company Number: US-CELGENEUS-USA-20210807315

PATIENT
  Sex: Female
  Weight: 98.52 kg

DRUGS (12)
  1. REVLIMID [Suspect]
     Active Substance: LENALIDOMIDE
     Dosage: 10 MILLIGRAM
     Route: 048
     Dates: start: 202103
  2. N?ACETYL?L CYSTEINE [Concomitant]
     Indication: PRODUCT USED FOR UNKNOWN INDICATION
     Route: 065
  3. BIOTIN [Concomitant]
     Active Substance: BIOTIN
     Indication: PRODUCT USED FOR UNKNOWN INDICATION
     Route: 048
  4. REVLIMID [Suspect]
     Active Substance: LENALIDOMIDE
     Indication: MYELODYSPLASTIC SYNDROME
     Dosage: 10 MILLIGRAM
     Route: 048
     Dates: start: 20200925
  5. ZINC. [Concomitant]
     Active Substance: ZINC
     Indication: PRODUCT USED FOR UNKNOWN INDICATION
     Route: 048
  6. MELATONIN [Concomitant]
     Active Substance: MELATONIN
     Indication: PRODUCT USED FOR UNKNOWN INDICATION
     Route: 048
  7. REVLIMID [Suspect]
     Active Substance: LENALIDOMIDE
     Dosage: 5 MILLIGRAM
     Route: 048
     Dates: start: 202102
  8. NAC [Concomitant]
     Indication: PRODUCT USED FOR UNKNOWN INDICATION
     Route: 048
  9. FLUTICASONE. [Concomitant]
     Active Substance: FLUTICASONE
     Indication: PRODUCT USED FOR UNKNOWN INDICATION
     Route: 065
  10. VALERIAN ROOT [Concomitant]
     Active Substance: VALERIAN
     Indication: PRODUCT USED FOR UNKNOWN INDICATION
     Route: 048
  11. HYDROCORTISONE. [Concomitant]
     Active Substance: HYDROCORTISONE
     Indication: PRODUCT USED FOR UNKNOWN INDICATION
     Route: 061
  12. GARLIC. [Concomitant]
     Active Substance: GARLIC
     Indication: PRODUCT USED FOR UNKNOWN INDICATION
     Route: 065

REACTIONS (6)
  - Fatigue [Unknown]
  - Epistaxis [Unknown]
  - Platelet count decreased [Unknown]
  - White blood cell count decreased [Unknown]
  - Peripheral swelling [Unknown]
  - Diarrhoea [Unknown]
